FAERS Safety Report 12133931 (Version 1)
Quarter: 2016Q1

REPORT INFORMATION
  Report Type: Spontaneous
  Country: US (occurrence: US)
  Receive Date: 20160301
  Receipt Date: 20160301
  Transmission Date: 20160526
  Serious: No
  Sender: FDA-Public Use
  Company Number: US-INSYS THERAPEUTICS, INC-INS201505-000192

PATIENT
  Sex: Female
  Weight: 68.03 kg

DRUGS (1)
  1. SUBSYS [Suspect]
     Active Substance: FENTANYL
     Indication: LYME DISEASE

REACTIONS (5)
  - Malaise [Unknown]
  - Product quality issue [Unknown]
  - Vomiting [Unknown]
  - Off label use [Unknown]
  - Rash [Unknown]
